FAERS Safety Report 8362179-9 (Version None)
Quarter: 2012Q2

REPORT INFORMATION
  Report Type: 
  Country: None (occurrence: None)
  Receive Date: 20120515
  Receipt Date: 20120504
  Transmission Date: 20120825
  Serious: Yes (Death)
  Sender: FDA-Public Use
  Company Number: BE-TEVA-337687ISR

PATIENT
  Sex: Female

DRUGS (12)
  1. NAPROXEN [Concomitant]
  2. MOVIPREP [Concomitant]
  3. COPAXONE [Suspect]
     Indication: MULTIPLE SCLEROSIS
     Dosage: 20 MILLIGRAM;
     Route: 058
     Dates: start: 20031123
  4. PERVIAM [Concomitant]
  5. ZANTAC [Concomitant]
  6. GLUCOPHAGE [Concomitant]
  7. MAGNETOP [Concomitant]
  8. VITAMIN B COMPLEX TAB [Concomitant]
     Dosage: UNIT DOSE: CYANOCOBALAMINE 20?G + PYRIDOXINE 250MG + RIBOFLAVINE 10MG + THIAMINE 250MG
     Route: 048
  9. LIVIAL [Concomitant]
  10. EPHYNAL [Concomitant]
  11. PRAXILENE [Concomitant]
  12. DITROPAN [Concomitant]

REACTIONS (1)
  - PULMONARY EMBOLISM [None]
